APPROVED DRUG PRODUCT: NALBUPHINE
Active Ingredient: NALBUPHINE HYDROCHLORIDE
Strength: 200MG/10ML (20MG/ML)
Dosage Form/Route: SOLUTION;INTRAMUSCULAR, INTRAVENOUS, SUBCUTANEOUS
Application: A070752 | Product #002
Applicant: ABRAXIS PHARMACEUTICAL PRODUCTS
Approved: Sep 24, 1986 | RLD: No | RS: No | Type: DISCN